FAERS Safety Report 25616956 (Version 1)
Quarter: 2025Q3

REPORT INFORMATION
  Report Type: Spontaneous
  Country: EU (occurrence: EU)
  Receive Date: 20250729
  Receipt Date: 20250729
  Transmission Date: 20251020
  Serious: Yes (Death)
  Sender: MERCK SHARP & DOHME LLC
  Company Number: EU-009507513-2313007

PATIENT
  Age: 49 Year
  Sex: Female

DRUGS (1)
  1. PEMBROLIZUMAB [Suspect]
     Active Substance: PEMBROLIZUMAB
     Indication: Progressive multifocal leukoencephalopathy
     Route: 042
     Dates: start: 20210122, end: 20210122

REACTIONS (2)
  - Progressive multifocal leukoencephalopathy [Fatal]
  - Off label use [Unknown]

NARRATIVE: CASE EVENT DATE: 20210122
